FAERS Safety Report 23259350 (Version 1)
Quarter: 2023Q4

REPORT INFORMATION
  Report Type: Spontaneous
  Country: CZ (occurrence: CZ)
  Receive Date: 20231204
  Receipt Date: 20231204
  Transmission Date: 20240110
  Serious: Yes (Other)
  Sender: FDA-Public Use
  Company Number: None

PATIENT
  Age: 76 Year
  Sex: Female
  Weight: 97 kg

DRUGS (8)
  1. IBRANCE [Suspect]
     Active Substance: PALBOCICLIB
     Indication: Breast cancer
     Dosage: STILL TAKING, DOSE REDUCED TO 100 MG ONCE A DAY SINCE NOVEMBER
     Route: 048
     Dates: start: 20230901, end: 202311
  2. DICLOFENAC SODIUM [Suspect]
     Active Substance: DICLOFENAC\DICLOFENAC SODIUM
     Indication: Bone pain
     Dosage: FREQ:24 H;REGULARLY, ONCE A DAY
     Route: 048
     Dates: start: 20230801
  3. HYDROCHLOROTHIAZIDE\LOSARTAN POTASSIUM [Suspect]
     Active Substance: HYDROCHLOROTHIAZIDE\LOSARTAN POTASSIUM
     Indication: Hypertension
     Dosage: REGULARLY ON A LONG-TERM BASIS, ONCE A DAY
     Route: 048
  4. ALLOPURINOL [Concomitant]
     Active Substance: ALLOPURINOL
     Dosage: FREQ:24 H;ONCE A DAY
  5. IBANDRONATE SODIUM [Concomitant]
     Active Substance: IBANDRONATE SODIUM
     Dosage: FREQ:24 H;ONCE A DAY
  6. LETROZOLE [Concomitant]
     Active Substance: LETROZOLE
     Dosage: FREQ:24 H;ONCE A DAY
  7. CALCIUM CARBONATE\CHOLECALCIFEROL [Concomitant]
     Active Substance: CALCIUM CARBONATE\CHOLECALCIFEROL
     Dosage: ONCE A DAY
  8. ROSUVASTATIN CALCIUM [Concomitant]
     Active Substance: ROSUVASTATIN CALCIUM
     Dosage: FREQ:24 H;ONCE A DAY

REACTIONS (2)
  - Blood creatinine increased [Recovering/Resolving]
  - Blood urea increased [Recovering/Resolving]

NARRATIVE: CASE EVENT DATE: 20230914
